FAERS Safety Report 13037200 (Version 4)
Quarter: 2019Q2

REPORT INFORMATION
  Report Type: Spontaneous
  Country: US (occurrence: US)
  Receive Date: 20161216
  Receipt Date: 20190409
  Transmission Date: 20190711
  Serious: Yes (Hospitalization, Other)
  Sender: FDA-Public Use
  Company Number: US-PFIZER INC-2016575912

PATIENT
  Age: 15 Year
  Sex: Male

DRUGS (9)
  1. NOREPINEPHRINE. [Concomitant]
     Active Substance: NOREPINEPHRINE
     Indication: STATUS ASTHMATICUS
     Dosage: UNK
  2. ADRENALINE [Suspect]
     Active Substance: EPINEPHRINE
     Indication: ASTHMA
     Dosage: UNK
     Route: 050
  3. ALBUTEROL. [Concomitant]
     Active Substance: ALBUTEROL
     Indication: STATUS ASTHMATICUS
     Dosage: CONTINEOUS
     Route: 065
  4. SOLU-MEDROL [Concomitant]
     Active Substance: METHYLPREDNISOLONE SODIUM SUCCINATE
     Indication: STATUS ASTHMATICUS
     Dosage: UNK
     Route: 065
  5. DUONEBS [Concomitant]
     Indication: STATUS ASTHMATICUS
     Dosage: UNK
     Route: 065
  6. KETAMINE HCL [Suspect]
     Active Substance: KETAMINE HYDROCHLORIDE
     Indication: STATUS ASTHMATICUS
     Dosage: CONTINUOUS ADMINISTRATION
  7. TERBUTALINE [Concomitant]
     Active Substance: TERBUTALINE
     Indication: STATUS ASTHMATICUS
     Dosage: UNK
     Route: 065
  8. MILRINONE [Concomitant]
     Active Substance: MILRINONE
     Indication: STATUS ASTHMATICUS
     Dosage: UNK
  9. MAGNESIUM [Concomitant]
     Active Substance: MAGNESIUM
     Indication: STATUS ASTHMATICUS
     Dosage: UNK
     Route: 050

REACTIONS (2)
  - Hypertension [Unknown]
  - Electrocardiogram ST segment depression [Recovering/Resolving]
